FAERS Safety Report 21155536 (Version 1)
Quarter: 2022Q3

REPORT INFORMATION
  Report Type: Spontaneous
  Country: FR (occurrence: FR)
  Receive Date: 20220801
  Receipt Date: 20220801
  Transmission Date: 20221026
  Serious: Yes (Other)
  Sender: FDA-Public Use
  Company Number: FR-BAYER-2022P009290

PATIENT
  Age: 74 Year
  Sex: Male

DRUGS (1)
  1. EYLEA [Suspect]
     Active Substance: AFLIBERCEPT
     Indication: Product used for unknown indication
     Dosage: UNK (OS), SOLUTION FOR INJECTION
     Route: 031
     Dates: start: 20220408, end: 20220408

REACTIONS (1)
  - Amaurosis fugax [Unknown]

NARRATIVE: CASE EVENT DATE: 20220408
